FAERS Safety Report 6384039-5 (Version None)
Quarter: 2009Q3

REPORT INFORMATION
  Report Type: 
  Country: None (occurrence: None)
  Receive Date: 20090928
  Receipt Date: 20090921
  Transmission Date: 20100115
  Serious: Yes (Hospitalization)
  Sender: FDA-Public Use
  Company Number: 2009SP026292

PATIENT
  Age: 68 Year
  Sex: Female

DRUGS (11)
  1. MIRTAZAPINE [Suspect]
     Indication: DEPRESSION
     Dosage: 30 MG; QD; 15 MG; 7.5 MG
  2. TACROLIMUS [Suspect]
     Indication: IMMUNOSUPPRESSION
     Dosage: 0.2 MG/KG; QD
  3. SEVELAMER [Concomitant]
  4. OMEPRAZOLE [Concomitant]
  5. ASPIRIN [Concomitant]
  6. PRAVASTATIN [Concomitant]
  7. BROMAZEPAM [Concomitant]
  8. LEVOTHYROXINE SODIUM [Concomitant]
  9. MYCOPHENOLATE MOFETIL [Concomitant]
  10. BASILIXIMAB [Concomitant]
  11. CORTICOSTEROIDS [Concomitant]

REACTIONS (3)
  - COMPLICATIONS OF TRANSPLANTED KIDNEY [None]
  - DRUG LEVEL INCREASED [None]
  - HYPOTENSION [None]
